FAERS Safety Report 5419319-0 (Version None)
Quarter: 2007Q3

REPORT INFORMATION
  Report Type: 
  Country: None (occurrence: None)
  Receive Date: 20070820
  Receipt Date: 20070810
  Transmission Date: 20080115
  Serious: Yes (Death, Hospitalization)
  Sender: FDA-Public Use
  Company Number: GB-JNJFOC-20060904138

PATIENT
  Age: 91 Year
  Sex: Female

DRUGS (4)
  1. IBUPROFEN TABLETS [Suspect]
     Indication: OSTEOARTHRITIS
     Route: 048
  2. BUMETANIDE [Suspect]
     Indication: HYPERTENSION
  3. DICLOFENAC [Suspect]
     Indication: OSTEOARTHRITIS
  4. SPIRONOLACTONE [Suspect]
     Indication: HYPERTENSION

REACTIONS (1)
  - RENAL FAILURE [None]
